FAERS Safety Report 8917004 (Version 3)
Quarter: 2013Q4

REPORT INFORMATION
  Report Type: Report from Study
  Country: JP (occurrence: JP)
  Receive Date: 20121120
  Receipt Date: 20131017
  Transmission Date: 20140711
  Serious: Yes (Death, Life-Threatening)
  Sender: FDA-Public Use
  Company Number: JP-ACTELION-A-CH2012-74848

PATIENT
  Age: 76 Year
  Sex: Male

DRUGS (8)
  1. TRACLEER [Suspect]
     Indication: PULMONARY ARTERIAL HYPERTENSION
     Dosage: 125 MG, BID
     Route: 048
     Dates: start: 20120205, end: 20120330
  2. TRACLEER [Suspect]
     Dosage: 62.5 MG, BID
     Route: 048
     Dates: start: 20120106, end: 20120204
  3. BERAPROST SODIUM [Concomitant]
  4. FUROSEMIDE [Concomitant]
  5. CARPERITIDE [Concomitant]
  6. TOLVAPTAN [Concomitant]
  7. ASPIRIN [Concomitant]
  8. OXYGEN [Concomitant]

REACTIONS (11)
  - Blood alkaline phosphatase increased [Not Recovered/Not Resolved]
  - Hyperuricaemia [Recovered/Resolved]
  - Gastric ulcer [Not Recovered/Not Resolved]
  - Cardiac failure [Fatal]
  - Pneumonia [Not Recovered/Not Resolved]
  - Ventricular tachycardia [Recovered/Resolved]
  - Pyrexia [Not Recovered/Not Resolved]
  - Liver function test abnormal [Not Recovered/Not Resolved]
  - White blood cell count increased [Not Recovered/Not Resolved]
  - Aspartate aminotransferase increased [Not Recovered/Not Resolved]
  - Alanine aminotransferase increased [Not Recovered/Not Resolved]
